FAERS Safety Report 19382886 (Version 1)
Quarter: 2021Q2

REPORT INFORMATION
  Report Type: Spontaneous
  Country: US (occurrence: US)
  Receive Date: 20210607
  Receipt Date: 20210607
  Transmission Date: 20210717
  Serious: No
  Sender: FDA-Public Use
  Company Number: US-PERRIGO-21US004569

PATIENT
  Age: 83 Year
  Sex: Female
  Weight: 63.49 kg

DRUGS (1)
  1. ALBUTEROL SULFATE. [Suspect]
     Active Substance: ALBUTEROL SULFATE
     Indication: WHEEZING
     Dosage: 180 MCG, EVERY 4 HOURS, PRN
     Route: 055
     Dates: start: 202011

REACTIONS (1)
  - Drug administered in wrong device [Unknown]

NARRATIVE: CASE EVENT DATE: 202011
